FAERS Safety Report 11576554 (Version 1)
Quarter: 2015Q3

REPORT INFORMATION
  Report Type: Spontaneous
  Country: FR (occurrence: FR)
  Receive Date: 20150930
  Receipt Date: 20150930
  Transmission Date: 20151125
  Serious: Yes (Death, Other)
  Sender: FDA-Public Use
  Company Number: FR-CELGENE-FRA-2015095440

PATIENT

DRUGS (3)
  1. RITUXIMAB [Concomitant]
     Active Substance: RITUXIMAB
     Route: 065
  2. REVLIMID [Suspect]
     Active Substance: LENALIDOMIDE
     Indication: CHRONIC LYMPHOCYTIC LEUKAEMIA
     Dosage: 10 MILLIGRAM
     Route: 048
  3. RITUXIMAB [Concomitant]
     Active Substance: RITUXIMAB
     Indication: CHRONIC LYMPHOCYTIC LEUKAEMIA
     Route: 065

REACTIONS (8)
  - Neutropenia [Unknown]
  - Toxicity to various agents [Unknown]
  - Treatment failure [Unknown]
  - Thrombosis [Unknown]
  - Tumour flare [Unknown]
  - Chronic lymphocytic leukaemia [Fatal]
  - Gastrointestinal disorder [Unknown]
  - Pneumonia [Fatal]
